FAERS Safety Report 4366674-9 (Version None)
Quarter: 2004Q2

REPORT INFORMATION
  Report Type: 
  Country: None (occurrence: None)
  Receive Date: 20040524
  Receipt Date: 20040511
  Transmission Date: 20050107
  Serious: Yes (Hospitalization)
  Sender: FDA-Public Use
  Company Number: 2004031444

PATIENT
  Age: 49 Year
  Sex: Female

DRUGS (4)
  1. GLADEM (SERTRALINE) [Suspect]
     Indication: DEPRESSION
     Dosage: 100 MG (1 IN 1 D), ORAL
     Route: 048
     Dates: start: 20000101, end: 20040206
  2. DOXEPIN HCL [Suspect]
     Indication: DEPRESSION
     Dosage: 100 MG (1 IN 1 D), ORAL
     Route: 048
     Dates: start: 20000101, end: 20040206
  3. EPROSARTAN (EPROSARTAN) [Suspect]
     Indication: HYPERTENSION
     Dosage: 600 MG (1 IN 1 D), ORAL
     Route: 048
     Dates: end: 20040206
  4. METAMIZOLE SODIUM (METAMIZOLE SODIUM) [Concomitant]

REACTIONS (8)
  - ABDOMINAL PAIN [None]
  - CHOLELITHIASIS [None]
  - DRUG TOXICITY [None]
  - GALLBLADDER DISORDER [None]
  - HAEMOGLOBIN DECREASED [None]
  - HEPATOCELLULAR DAMAGE [None]
  - HYPERTENSION [None]
  - VASCULAR OCCLUSION [None]
